FAERS Safety Report 8377957-X (Version None)
Quarter: 2012Q2

REPORT INFORMATION
  Report Type: 
  Country: None (occurrence: None)
  Receive Date: 20120522
  Receipt Date: 20120516
  Transmission Date: 20120825
  Serious: Yes (Hospitalization)
  Sender: FDA-Public Use
  Company Number: US-AMGEN-QUU359917

PATIENT
  Age: 52 Year
  Sex: Female

DRUGS (1)
  1. ENBREL [Suspect]
     Indication: RHEUMATOID ARTHRITIS
     Dosage: 50 MG, QWK
     Dates: start: 20010201

REACTIONS (7)
  - RHEUMATOID ARTHRITIS [None]
  - RED BLOOD CELL SEDIMENTATION RATE INCREASED [None]
  - IMPAIRED GASTRIC EMPTYING [None]
  - ABDOMINAL PAIN [None]
  - SJOGREN'S SYNDROME [None]
  - URINARY TRACT INFECTION [None]
  - TOOTH INFECTION [None]
